FAERS Safety Report 16516025 (Version 1)
Quarter: 2019Q3

REPORT INFORMATION
  Report Type: Spontaneous
  Country: US (occurrence: US)
  Receive Date: 20190522
  Receipt Date: 20190522
  Transmission Date: 20191004
  Serious: No
  Sender: FDA-Public Use
  Company Number: None

PATIENT
  Age: 65 Year
  Sex: Female

DRUGS (1)
  1. TASIGNA [Suspect]
     Active Substance: NILOTINIB
     Route: 048
     Dates: start: 20181026

REACTIONS (8)
  - Rash [None]
  - Abdominal pain upper [None]
  - Contusion [None]
  - Madarosis [None]
  - Nausea [None]
  - Muscle spasms [None]
  - Retching [None]
  - Alopecia [None]

NARRATIVE: CASE EVENT DATE: 20190522
